FAERS Safety Report 21033453 (Version 1)
Quarter: 2022Q2

REPORT INFORMATION
  Report Type: Spontaneous
  Country: US (occurrence: None)
  Receive Date: 20220630
  Receipt Date: 20220630
  Transmission Date: 20220721
  Serious: Yes (Hospitalization)
  Sender: FDA-Public Use
  Company Number: None

PATIENT
  Age: 18 Year
  Sex: Female

DRUGS (1)
  1. DUPIXENT [Suspect]
     Active Substance: DUPILUMAB
     Indication: Dermatitis atopic
     Dosage: FREQUENCY : EVERY OTHER WEEK;?
     Route: 058

REACTIONS (6)
  - Dizziness [None]
  - Presyncope [None]
  - Haematochezia [None]
  - Abdominal pain [None]
  - Device difficult to use [None]
  - Needle issue [None]

NARRATIVE: CASE EVENT DATE: 20220627
